FAERS Safety Report 8488237-6 (Version None)
Quarter: 2012Q3

REPORT INFORMATION
  Report Type: 
  Country: None (occurrence: None)
  Receive Date: 20120705
  Receipt Date: 20120627
  Transmission Date: 20120928
  Serious: Yes (Hospitalization, Other)
  Sender: FDA-Public Use
  Company Number: US-AMGEN-USASP2012039777

PATIENT
  Age: 63 Year
  Sex: Female

DRUGS (1)
  1. ENBREL [Suspect]
     Indication: RHEUMATOID ARTHRITIS
     Dosage: UNK WEEKLY
     Route: 058
     Dates: start: 20090627, end: 20110101

REACTIONS (4)
  - FALL [None]
  - HIP ARTHROPLASTY [None]
  - OSTEONECROSIS [None]
  - LUMBAR VERTEBRAL FRACTURE [None]
